FAERS Safety Report 8841629 (Version 2)
Quarter: 2015Q3

REPORT INFORMATION
  Report Type: Report from Study
  Country: JP (occurrence: JP)
  Receive Date: 20121015
  Receipt Date: 20150821
  Transmission Date: 20151125
  Serious: No
  Sender: FDA-Public Use
  Company Number: JP-ASTRAZENECA-2011SE50362

PATIENT
  Age: 46 Year
  Sex: Female
  Weight: 62 kg

DRUGS (80)
  1. PREDONINE [Suspect]
     Active Substance: PREDNISOLONE\PREDNISOLONE ACETATE\PREDNISOLONE SODIUM SUCCINATE
     Indication: ASTHMA
     Dosage: NUMBER OF SEPARATE DOSAGES UNKNOWN
     Route: 048
     Dates: start: 20110323, end: 20110326
  2. MONTELUKAST [Concomitant]
     Active Substance: MONTELUKAST SODIUM
     Indication: ASTHMA
     Route: 048
  3. BISOLVON [Concomitant]
     Active Substance: BROMHEXINE HYDROCHLORIDE
     Indication: ASTHMA
     Route: 048
  4. GENINAX [Concomitant]
     Active Substance: GARENOXACIN MESYLATE
     Indication: BRONCHITIS
     Route: 048
     Dates: start: 20110322, end: 20110328
  5. SOLDEM 3 [Concomitant]
     Indication: ASTHMA
     Route: 041
     Dates: start: 20101112, end: 20101112
  6. NEOPHYLLIN INJECTION [Concomitant]
     Indication: ASTHMA
     Route: 041
     Dates: start: 20110304, end: 20110304
  7. SOL-MELCORT [Concomitant]
     Active Substance: METHYLPREDNISOLONE SODIUM SUCCINATE
     Indication: ASTHMA
     Route: 041
     Dates: start: 20101019, end: 20101021
  8. SOL-MELCORT [Concomitant]
     Active Substance: METHYLPREDNISOLONE SODIUM SUCCINATE
     Indication: ASTHMA
     Route: 041
     Dates: start: 20110208, end: 20110208
  9. PL [Concomitant]
     Active Substance: ACETAMINOPHEN\CAFFEINE\PROMETHAZINE\SALICYLAMIDE
     Indication: BRONCHITIS
     Route: 048
     Dates: start: 20101113, end: 20101122
  10. PREDONINE [Suspect]
     Active Substance: PREDNISOLONE\PREDNISOLONE ACETATE\PREDNISOLONE SODIUM SUCCINATE
     Indication: ASTHMA
     Route: 048
     Dates: end: 20100510
  11. PREDONINE [Suspect]
     Active Substance: PREDNISOLONE\PREDNISOLONE ACETATE\PREDNISOLONE SODIUM SUCCINATE
     Indication: ASTHMA
     Dosage: NUMBER OF SEPARATE DOSAGES UNKNOWN
     Route: 048
     Dates: start: 20110410, end: 20110413
  12. GENINAX [Concomitant]
     Active Substance: GARENOXACIN MESYLATE
     Indication: BRONCHITIS
     Route: 048
     Dates: start: 20110208, end: 20110213
  13. CALONAL [Concomitant]
     Active Substance: ACETAMINOPHEN
     Indication: BRONCHITIS
     Route: 048
     Dates: start: 20100427, end: 20100504
  14. KOLANTYL [Concomitant]
     Active Substance: DICYCLOMINE HYDROCHLORIDE
     Indication: GASTRITIS
     Route: 048
  15. SOLDEM 3 [Concomitant]
     Indication: ASTHMA
     Route: 041
     Dates: start: 20110304, end: 20110304
  16. SAXIZON [Concomitant]
     Active Substance: HYDROCORTISONE SODIUM SUCCINATE
     Indication: ASTHMA
     Route: 065
     Dates: start: 20101007, end: 20101007
  17. SOL-MELCORT [Concomitant]
     Active Substance: METHYLPREDNISOLONE SODIUM SUCCINATE
     Indication: ASTHMA
     Route: 041
     Dates: start: 20101008, end: 20101008
  18. SOL-MELCORT [Concomitant]
     Active Substance: METHYLPREDNISOLONE SODIUM SUCCINATE
     Indication: ASTHMA
     Route: 041
     Dates: start: 20110322, end: 20110322
  19. HERBAL NOS [Concomitant]
     Active Substance: HERBALS
     Indication: GASTROINTESTINAL DISORDER
     Route: 048
     Dates: start: 20101124, end: 20101129
  20. SYMBICORT [Suspect]
     Active Substance: BUDESONIDE\FORMOTEROL FUMARATE DIHYDRATE
     Indication: ASTHMA
     Dosage: 320/9 UG TWO INHALATION TWO TIMES A DAY
     Route: 055
     Dates: start: 20100427, end: 20100524
  21. PREDONINE [Suspect]
     Active Substance: PREDNISOLONE\PREDNISOLONE ACETATE\PREDNISOLONE SODIUM SUCCINATE
     Indication: ASTHMA
     Dosage: NUMBER OF SEPARATE DOSAGES UNKNOWN
     Route: 048
     Dates: start: 20110209, end: 20110212
  22. PREDONINE [Suspect]
     Active Substance: PREDNISOLONE\PREDNISOLONE ACETATE\PREDNISOLONE SODIUM SUCCINATE
     Indication: ASTHMA
     Dosage: NUMBER OF SEPARATE DOSAGES UNKNOWN
     Route: 048
     Dates: start: 20110308
  23. HIBON [Concomitant]
     Active Substance: RIBOFLAVIN
     Indication: STOMATITIS
     Route: 048
  24. BAKUMONDO-TO [Concomitant]
     Active Substance: HERBALS
     Indication: ASTHMA
     Route: 048
  25. SOLDEM 3 [Concomitant]
     Indication: ASTHMA
     Route: 041
     Dates: start: 20101007, end: 20101007
  26. SOLDEM 3 [Concomitant]
     Indication: ASTHMA
     Route: 041
     Dates: start: 20110325, end: 20110326
  27. SOL-MELCORT [Concomitant]
     Active Substance: METHYLPREDNISOLONE SODIUM SUCCINATE
     Indication: ASTHMA
     Route: 041
     Dates: start: 20101009, end: 20101018
  28. SOL-MELCORT [Concomitant]
     Active Substance: METHYLPREDNISOLONE SODIUM SUCCINATE
     Indication: ASTHMA
     Route: 041
     Dates: start: 20101112, end: 20101112
  29. U-PAN [Concomitant]
     Active Substance: LORAZEPAM
     Indication: ANXIETY DISORDER
     Route: 048
     Dates: start: 20101029
  30. PL [Concomitant]
     Active Substance: ACETAMINOPHEN\CAFFEINE\PROMETHAZINE\SALICYLAMIDE
     Indication: UPPER RESPIRATORY TRACT INFLAMMATION
     Route: 048
     Dates: start: 20110208, end: 20110213
  31. PRIMPERAN [Concomitant]
     Active Substance: METOCLOPRAMIDE HYDROCHLORIDE
     Indication: GASTROINTESTINAL DISORDER
     Route: 048
     Dates: start: 20101113, end: 20101122
  32. PREDONINE [Suspect]
     Active Substance: PREDNISOLONE\PREDNISOLONE ACETATE\PREDNISOLONE SODIUM SUCCINATE
     Indication: ASTHMA
     Dosage: NUMBER OF SEPARATE DOSAGES UNKNOWN
     Route: 048
     Dates: start: 20101019, end: 20101027
  33. MOBIC [Concomitant]
     Active Substance: MELOXICAM
     Indication: INTERVERTEBRAL DISC PROTRUSION
     Route: 048
  34. TAVEGYL [Concomitant]
     Active Substance: CLEMASTINE FUMARATE
     Indication: URTICARIA
     Route: 048
  35. UNICON [Concomitant]
     Active Substance: THEOPHYLLINE ANHYDROUS
     Indication: ASTHMA
     Route: 048
  36. PULMICORT TURBUHALER [Concomitant]
     Active Substance: BUDESONIDE
     Indication: ASTHMA
     Route: 055
  37. INTAL [Concomitant]
     Active Substance: CROMOLYN SODIUM
     Indication: CONJUNCTIVITIS ALLERGIC
     Dosage: DOSE UNKNOWN
     Route: 047
     Dates: start: 20100831
  38. SOLDEM 3 [Concomitant]
     Indication: ASTHMA
     Route: 041
     Dates: start: 20110208, end: 20110208
  39. SOLDEM 3 [Concomitant]
     Indication: ASTHMA
     Route: 041
     Dates: start: 20110313, end: 20110313
  40. SOLDEM 3 [Concomitant]
     Indication: ASTHMA
     Route: 041
     Dates: start: 20110409, end: 20110409
  41. SOLDEM 3 [Concomitant]
     Indication: ASTHMA
     Route: 041
     Dates: start: 20110415, end: 20110415
  42. NEOPHYLLIN INJECTION [Concomitant]
     Indication: ASTHMA
     Route: 041
     Dates: start: 20110322, end: 20110322
  43. SOL-MELCORT [Concomitant]
     Active Substance: METHYLPREDNISOLONE SODIUM SUCCINATE
     Indication: ASTHMA
     Route: 041
     Dates: start: 20110313, end: 20110313
  44. SOL-MELCORT [Concomitant]
     Active Substance: METHYLPREDNISOLONE SODIUM SUCCINATE
     Indication: ASTHMA
     Route: 041
     Dates: start: 20110325, end: 20110326
  45. PL [Concomitant]
     Active Substance: ACETAMINOPHEN\CAFFEINE\PROMETHAZINE\SALICYLAMIDE
     Indication: BRONCHITIS
     Route: 048
     Dates: start: 20110208, end: 20110213
  46. SYMBICORT [Suspect]
     Active Substance: BUDESONIDE\FORMOTEROL FUMARATE DIHYDRATE
     Indication: ASTHMA
     Dosage: 320/9 UG FOUR INHALATION TWO TIMES A DAY
     Route: 055
     Dates: start: 20100525
  47. PREDONINE [Suspect]
     Active Substance: PREDNISOLONE\PREDNISOLONE ACETATE\PREDNISOLONE SODIUM SUCCINATE
     Indication: ASTHMA
     Route: 048
     Dates: start: 20101031
  48. GASRICK D [Concomitant]
     Active Substance: FAMOTIDINE
     Indication: GASTRITIS
     Route: 048
  49. SOLANTAL [Concomitant]
     Active Substance: TIARAMIDE
     Indication: INTERVERTEBRAL DISC PROTRUSION
     Route: 048
  50. SOLDEM 3 [Concomitant]
     Indication: ASTHMA
     Route: 041
     Dates: start: 20110223, end: 20110223
  51. SOLDEM 3 [Concomitant]
     Indication: ASTHMA
     Route: 041
     Dates: start: 20110322, end: 20110322
  52. NEOPHYLLIN INJECTION [Concomitant]
     Indication: ASTHMA
     Route: 041
     Dates: start: 20110313, end: 20110313
  53. NEOPHYLLIN INJECTION [Concomitant]
     Indication: ASTHMA
     Route: 041
     Dates: start: 20110325, end: 20110326
  54. NEOPHYLLIN INJECTION [Concomitant]
     Indication: ASTHMA
     Route: 041
     Dates: start: 20110415
  55. SOL-MELCORT [Concomitant]
     Active Substance: METHYLPREDNISOLONE SODIUM SUCCINATE
     Indication: ASTHMA
     Route: 041
     Dates: start: 20110223, end: 20110223
  56. JZOLOFT [Concomitant]
     Active Substance: SERTRALINE HYDROCHLORIDE
     Indication: DEPRESSION
     Route: 048
     Dates: start: 20101112
  57. PL [Concomitant]
     Active Substance: ACETAMINOPHEN\CAFFEINE\PROMETHAZINE\SALICYLAMIDE
     Indication: UPPER RESPIRATORY TRACT INFLAMMATION
     Route: 048
     Dates: start: 20101113, end: 20101122
  58. SENNOSIDE [Concomitant]
     Active Substance: SENNOSIDES
     Indication: CONSTIPATION
     Route: 048
  59. FUROSEMIDE. [Concomitant]
     Active Substance: FUROSEMIDE
     Indication: OEDEMA
     Route: 048
  60. NEUER [Concomitant]
     Active Substance: CETRAXATE HYDROCHLORIDE
     Indication: GASTRITIS
     Route: 048
  61. GENINAX [Concomitant]
     Active Substance: GARENOXACIN MESYLATE
     Indication: BRONCHITIS
     Route: 048
     Dates: start: 20101021, end: 20101025
  62. GENINAX [Concomitant]
     Active Substance: GARENOXACIN MESYLATE
     Indication: BRONCHITIS
     Route: 048
     Dates: start: 20110308, end: 20110314
  63. NEOPHYLLIN INJECTION [Concomitant]
     Indication: ASTHMA
     Route: 041
     Dates: start: 20101007, end: 20101007
  64. NEOPHYLLIN INJECTION [Concomitant]
     Indication: ASTHMA
     Route: 041
     Dates: start: 20110208, end: 20110208
  65. NEOPHYLLIN INJECTION [Concomitant]
     Indication: ASTHMA
     Route: 041
     Dates: start: 20110223, end: 20110223
  66. NEOPHYLLIN INJECTION [Concomitant]
     Indication: ASTHMA
     Route: 041
     Dates: start: 20110409, end: 20110409
  67. SOL-MELCORT [Concomitant]
     Active Substance: METHYLPREDNISOLONE SODIUM SUCCINATE
     Indication: ASTHMA
     Route: 041
     Dates: start: 20110409, end: 20110409
  68. LIVOSTIN [Concomitant]
     Active Substance: LEVOCABASTINE HYDROCHLORIDE
     Indication: RHINITIS ALLERGIC
     Route: 045
     Dates: start: 20110228
  69. SEREVENT DISKUS [Concomitant]
     Active Substance: SALMETEROL XINAFOATE
     Indication: ASTHMA
     Route: 055
     Dates: end: 20100526
  70. GENINAX [Concomitant]
     Active Substance: GARENOXACIN MESYLATE
     Indication: BRONCHITIS
     Route: 048
     Dates: start: 20110405, end: 20110411
  71. NEOPHYLLIN INJECTION [Concomitant]
     Indication: ASTHMA
     Route: 041
     Dates: start: 20101008, end: 20101021
  72. SOLDEM 3AG [Concomitant]
     Indication: DEHYDRATION
     Route: 041
     Dates: start: 20101124, end: 20101124
  73. SYMBICORT [Suspect]
     Active Substance: BUDESONIDE\FORMOTEROL FUMARATE DIHYDRATE
     Indication: ASTHMA
     Dosage: 320/9 UG ONE INHALATION TWO TIMES A DAY
     Route: 055
     Dates: start: 20100415, end: 20100426
  74. SULTANOL [Suspect]
     Active Substance: ALBUTEROL SULFATE
     Indication: ASTHMA
     Route: 055
  75. PREDONINE [Suspect]
     Active Substance: PREDNISOLONE\PREDNISOLONE ACETATE\PREDNISOLONE SODIUM SUCCINATE
     Indication: ASTHMA
     Dosage: NUMBER OF SEPARATE DOSAGES UNKNOWN
     Route: 048
     Dates: start: 20101028, end: 20101030
  76. GENINAX [Concomitant]
     Active Substance: GARENOXACIN MESYLATE
     Indication: BRONCHITIS
     Route: 048
     Dates: start: 20100427, end: 20100504
  77. PREDNISOLONE. [Concomitant]
     Active Substance: PREDNISOLONE
     Indication: ASTHMA
     Dosage: NUMBER OF SEPARATE DOSAGES UNKNOWN
     Route: 048
     Dates: start: 20100511
  78. NEOPHYLLIN INJECTION [Concomitant]
     Indication: ASTHMA
     Route: 041
     Dates: start: 20101112, end: 20101112
  79. SOL-MELCORT [Concomitant]
     Active Substance: METHYLPREDNISOLONE SODIUM SUCCINATE
     Indication: ASTHMA
     Route: 041
     Dates: start: 20110304, end: 20110304
  80. TETRAMIDE [Concomitant]
     Active Substance: MIANSERIN
     Indication: DEPRESSION
     Route: 048
     Dates: start: 20101112, end: 20110218

REACTIONS (4)
  - Upper respiratory tract inflammation [Recovered/Resolved]
  - Asthma [Recovering/Resolving]
  - Blood potassium decreased [Recovered/Resolved]
  - Dehydration [Recovered/Resolved]

NARRATIVE: CASE EVENT DATE: 20101008
